FAERS Safety Report 6613987-3 (Version None)
Quarter: 2010Q1

REPORT INFORMATION
  Report Type: 
  Country: None (occurrence: None)
  Receive Date: 20100304
  Receipt Date: 20100224
  Transmission Date: 20100710
  Serious: Yes (Other)
  Sender: FDA-Public Use
  Company Number: JP-JNJFOC-20100300978

PATIENT
  Age: 71 Year
  Sex: Female
  Weight: 64 kg

DRUGS (9)
  1. REMICADE [Suspect]
     Indication: RHEUMATOID ARTHRITIS
     Dosage: 3 INFUSIONS ON UNSPECIFIED DATES
     Route: 042
  2. REMICADE [Suspect]
     Route: 042
  3. REMICADE [Suspect]
     Route: 042
  4. METHOTREXATE [Suspect]
     Indication: RHEUMATOID ARTHRITIS
     Route: 048
  5. METHOTREXATE [Suspect]
     Route: 048
  6. METHOTREXATE [Suspect]
     Route: 048
  7. PREDNISOLONE [Suspect]
     Indication: RHEUMATOID ARTHRITIS
     Route: 048
  8. PREDNISOLONE [Suspect]
     Route: 048
  9. ETANERCEPT [Suspect]
     Indication: RHEUMATOID ARTHRITIS

REACTIONS (2)
  - DRUG INEFFECTIVE [None]
  - PNEUMONIA CRYPTOCOCCAL [None]
